FAERS Safety Report 18160024 (Version 1)
Quarter: 2020Q3

REPORT INFORMATION
  Report Type: Report from Study
  Country: None (occurrence: GR)
  Receive Date: 20200818
  Receipt Date: 20200818
  Transmission Date: 20201103
  Serious: Yes (Death)
  Sender: FDA-Public Use
  Company Number: GR-ABBVIE-20K-066-3528261-00

PATIENT
  Age: 79 Year
  Sex: Female

DRUGS (7)
  1. MIRAPEXIN [Concomitant]
     Active Substance: PRAMIPEXOLE
     Indication: PRODUCT USED FOR UNKNOWN INDICATION
  2. LEPONEX [Concomitant]
     Active Substance: CLOZAPINE
     Indication: HALLUCINATION
     Route: 048
  3. MADOPAR [Concomitant]
     Active Substance: BENSERAZIDE HYDROCHLORIDE\LEVODOPA
     Indication: PARKINSON^S DISEASE
     Dosage: (200+50)MG
     Route: 048
  4. EBIMEM [Concomitant]
     Indication: DEMENTIA
     Dates: start: 20191119
  5. DUODOPA [Suspect]
     Active Substance: CARBIDOPA\LEVODOPA
  6. DUODOPA [Suspect]
     Active Substance: CARBIDOPA\LEVODOPA
     Indication: PARKINSON^S DISEASE
     Dosage: MORNING DOSE: 4.0 ML, CONTINUOUS RATE: 1.8 ML/H, EXTRA DOSE: 1.5 ML
     Route: 050
     Dates: start: 201307
  7. DOZILAX [Concomitant]
     Indication: PRODUCT USED FOR UNKNOWN INDICATION
     Dates: start: 20191119

REACTIONS (1)
  - Pulmonary oedema [Fatal]
